FAERS Safety Report 5299392-3 (Version None)
Quarter: 2007Q2

REPORT INFORMATION
  Report Type: 
  Country: None (occurrence: None)
  Receive Date: 20070417
  Receipt Date: 20070412
  Transmission Date: 20071010
  Serious: Yes (Death)
  Sender: FDA-Public Use
  Company Number: PHBS2007IN06397

PATIENT
  Age: 13 Year
  Sex: Female

DRUGS (5)
  1. CYCLOSPORINE [Suspect]
     Indication: STEM CELL TRANSPLANT
  2. BUSULFAN [Concomitant]
  3. CYCLOPHOSPHAMIDE [Concomitant]
  4. NEUPOGEN [Concomitant]
  5. METHOTREXATE [Suspect]
     Indication: STEM CELL TRANSPLANT

REACTIONS (30)
  - ABDOMINAL DISTENSION [None]
  - ABDOMINAL MASS [None]
  - ABDOMINAL PAIN [None]
  - ABDOMINAL TENDERNESS [None]
  - ACUTE RESPIRATORY DISTRESS SYNDROME [None]
  - BLOOD BILIRUBIN UNCONJUGATED INCREASED [None]
  - BLOOD IMMUNOGLOBULIN G INCREASED [None]
  - BLOOD IMMUNOGLOBULIN M INCREASED [None]
  - BLOOD LACTATE DEHYDROGENASE INCREASED [None]
  - BLOOD SMEAR TEST ABNORMAL [None]
  - BOWEL SOUNDS ABNORMAL [None]
  - COAGULATION TEST ABNORMAL [None]
  - CONSTIPATION [None]
  - COOMBS DIRECT TEST POSITIVE [None]
  - DISSEMINATED INTRAVASCULAR COAGULATION [None]
  - FLANK PAIN [None]
  - FREE HAEMOGLOBIN PRESENT [None]
  - HAEMOGLOBIN DECREASED [None]
  - HAEMOGLOBINURIA [None]
  - HAEMORRHAGE [None]
  - HAPTOGLOBIN DECREASED [None]
  - INTRAVASCULAR HAEMOLYSIS [None]
  - LEUKOCYTOSIS [None]
  - NECROSIS [None]
  - PEPTOSTREPTOCOCCUS INFECTION [None]
  - PYREXIA [None]
  - RED BLOOD CELL SCHISTOCYTES PRESENT [None]
  - RENAL FAILURE [None]
  - SEPSIS [None]
  - THROMBOCYTOPENIA [None]
